FAERS Safety Report 20889569 (Version 1)
Quarter: 2022Q2

REPORT INFORMATION
  Report Type: Report from Study
  Country: CA (occurrence: CA)
  Receive Date: 20220530
  Receipt Date: 20220530
  Transmission Date: 20220720
  Serious: Yes (Other)
  Sender: FDA-Public Use
  Company Number: CA-ABBVIE-22K-028-4413321-00

PATIENT
  Sex: Female

DRUGS (1)
  1. HUMIRA [Suspect]
     Active Substance: ADALIMUMAB
     Indication: Rheumatoid arthritis
     Route: 058
     Dates: start: 20180712

REACTIONS (4)
  - Musculoskeletal disorder [Unknown]
  - Hyperkeratosis [Recovered/Resolved]
  - Musculoskeletal disorder [Unknown]
  - Peripheral swelling [Not Recovered/Not Resolved]
